FAERS Safety Report 9735829 (Version 1)
Quarter: 2013Q4

REPORT INFORMATION
  Report Type: Spontaneous
  Country: US (occurrence: US)
  Receive Date: 20131206
  Receipt Date: 20131206
  Transmission Date: 20140711
  Serious: No
  Sender: FDA-Public Use
  Company Number: US-GILEAD-2009-0023783

PATIENT
  Sex: Male
  Weight: 107.5 kg

DRUGS (16)
  1. LETAIRIS [Suspect]
     Indication: PULMONARY ARTERIAL HYPERTENSION
     Route: 048
     Dates: start: 20090727
  2. FUROSEMIDE [Concomitant]
  3. ATENOLOL [Concomitant]
  4. ALBUTEROL SULFATE [Concomitant]
  5. PROTONIX [Concomitant]
  6. PREDNISONE [Concomitant]
  7. IPRATROPIUM 0.03% SPRAY [Concomitant]
  8. LIPITOR [Concomitant]
  9. LISINOPRIL [Concomitant]
  10. METOLAZONE [Concomitant]
  11. ADVAIR [Concomitant]
  12. SPIRIVA [Concomitant]
  13. PLAVIX [Concomitant]
  14. MUCINEX [Concomitant]
  15. POTASSIUM CL [Concomitant]
  16. ASPIRIN [Concomitant]

REACTIONS (1)
  - Fluid retention [Unknown]
